FAERS Safety Report 5758658-0 (Version None)
Quarter: 2008Q2

REPORT INFORMATION
  Report Type: 
  Country: None (occurrence: None)
  Receive Date: 20080528
  Receipt Date: 20080513
  Transmission Date: 20081010
  Serious: Yes (Hospitalization, Other)
  Sender: FDA-Public Use
  Company Number: PHNU2007DE04273

PATIENT
  Sex: Female
  Weight: 53 kg

DRUGS (10)
  1. ACLASTA (ZOLEDRONATE) SOLUTION FOR INJECTION [Suspect]
     Indication: OSTEOPOROSIS
     Dosage: 5 MG, ONCE YEARLY, INTRAVENOUS; 15 ML/MIN, INTRAVENOUS
     Route: 042
     Dates: start: 20071218, end: 20071218
  2. ACLASTA (ZOLEDRONATE) SOLUTION FOR INJECTION [Suspect]
     Indication: OSTEOPOROSIS
     Dosage: 5 MG, ONCE YEARLY, INTRAVENOUS; 15 ML/MIN, INTRAVENOUS
     Route: 042
     Dates: start: 20080401, end: 20080401
  3. GAMMA GLOBULIN (IMMUNOGLOBULIN HUMAN NORMAL) UNKNOWN [Concomitant]
  4. CANDESARTAN CILEXETIL [Concomitant]
  5. CANDESARTAN CILEXETIL [Concomitant]
  6. JODID (POTASSIUM IODIDE) TABLET, 200 [Concomitant]
  7. COLECALCIFEROL (COLECALCIFEROL) [Concomitant]
  8. INEGY (EZETIMIBE, SIMVASTATIN), 10/20 MG [Concomitant]
  9. ALLOPURINOL [Concomitant]
  10. ARANESP [Concomitant]

REACTIONS (9)
  - CONDITION AGGRAVATED [None]
  - CONTRAINDICATION TO MEDICAL TREATMENT [None]
  - HAEMATURIA [None]
  - HYPERTENSION [None]
  - HYPONATRAEMIA [None]
  - PROTEINURIA [None]
  - RENAL FAILURE [None]
  - VIRAL INFECTION [None]
  - VOMITING [None]
